FAERS Safety Report 17275764 (Version 1)
Quarter: 2020Q1

REPORT INFORMATION
  Report Type: Spontaneous
  Country: US (occurrence: US)
  Receive Date: 20200116
  Receipt Date: 20200116
  Transmission Date: 20200409
  Serious: No
  Sender: FDA-Public Use
  Company Number: US-ASTRAZENECA-2019SF85180

PATIENT
  Age: 24527 Day
  Sex: Female

DRUGS (1)
  1. FASENRA [Suspect]
     Active Substance: BENRALIZUMAB
     Indication: ASTHMA
     Dosage: MONTHLY
     Route: 058
     Dates: start: 20191120

REACTIONS (4)
  - Pain [Recovered/Resolved]
  - Productive cough [Not Recovered/Not Resolved]
  - Dyspnoea exertional [Unknown]
  - Pulmonary congestion [Unknown]

NARRATIVE: CASE EVENT DATE: 20191121
